FAERS Safety Report 4341814-6 (Version None)
Quarter: 2004Q2

REPORT INFORMATION
  Report Type: 
  Country: None (occurrence: None)
  Receive Date: 20040420
  Receipt Date: 20040419
  Transmission Date: 20050107
  Serious: Yes (Other)
  Sender: FDA-Public Use
  Company Number: DE-GLAXOSMITHKLINE-D0043604A

PATIENT
  Age: 39 Year
  Sex: Female
  Weight: 65 kg

DRUGS (5)
  1. LAMICTAL [Suspect]
     Dosage: 3TAB THREE TIMES PER DAY
     Route: 048
  2. PARACETAMOL SUPPOSITORY [Suspect]
     Dosage: 1SUP UNKNOWN
     Route: 054
  3. TRILEPTAL [Suspect]
     Dosage: 3TAB THREE TIMES PER DAY
     Route: 048
  4. CIPRALEX [Suspect]
     Dosage: 1.5TAB PER DAY
     Route: 048
  5. FOLIC ACID [Suspect]
     Dosage: 1TAB PER DAY
     Route: 048

REACTIONS (4)
  - ALANINE AMINOTRANSFERASE ABNORMAL [None]
  - BLOOD CREATINE PHOSPHOKINASE INCREASED [None]
  - HEPATIC FUNCTION ABNORMAL [None]
  - PROTHROMBIN TIME PROLONGED [None]
